FAERS Safety Report 25178419 (Version 1)
Quarter: 2025Q2

REPORT INFORMATION
  Report Type: Spontaneous
  Country: CA (occurrence: CA)
  Receive Date: 20250409
  Receipt Date: 20250409
  Transmission Date: 20250717
  Serious: Yes (Death, Disabling, Other)
  Sender: AMGEN
  Company Number: CA-AMGEN-CANSP2025063341

PATIENT

DRUGS (1)
  1. ROMIPLOSTIM [Suspect]
     Active Substance: ROMIPLOSTIM
     Indication: Immune thrombocytopenia
     Route: 065

REACTIONS (7)
  - Haemorrhage intracranial [Fatal]
  - Gastrointestinal haemorrhage [Fatal]
  - Pulmonary haemorrhage [Fatal]
  - Septic shock [Fatal]
  - Nervous system disorder [Unknown]
  - Epistaxis [Unknown]
  - Haemorrhage [Unknown]
